FAERS Safety Report 7941587-1 (Version None)
Quarter: 2011Q4

REPORT INFORMATION
  Report Type: 
  Country: None (occurrence: None)
  Receive Date: 20111128
  Receipt Date: 20111122
  Transmission Date: 20120403
  Serious: Yes (Death, Hospitalization)
  Sender: FDA-Public Use
  Company Number: US-BAYER-2011-083119

PATIENT
  Age: 59 Year
  Sex: Male
  Weight: 71.202 kg

DRUGS (5)
  1. OXYCONTIN [Concomitant]
  2. NEXAVAR [Suspect]
     Indication: HEPATIC NEOPLASM MALIGNANT
     Dosage: 200 MG, BID
     Route: 048
     Dates: start: 20110801
  3. VIREAD [Concomitant]
  4. STOOL SOFTENER [Concomitant]
  5. OXYCODONE HCL [Concomitant]

REACTIONS (5)
  - PYREXIA [None]
  - HEART RATE INCREASED [None]
  - DEATH [None]
  - DEVICE RELATED INFECTION [None]
  - ASTHENIA [None]
